FAERS Safety Report 8472075-4 (Version None)
Quarter: 2012Q2

REPORT INFORMATION
  Report Type: 
  Country: None (occurrence: None)
  Receive Date: 20120627
  Receipt Date: 20120625
  Transmission Date: 20120825
  Serious: Yes (Other)
  Sender: FDA-Public Use
  Company Number: US-BAYER-2012-063284

PATIENT
  Age: 40 Year
  Sex: Female

DRUGS (4)
  1. ADDERALL 5 [Concomitant]
  2. AVELOX [Suspect]
     Indication: SINUSITIS
     Dosage: 400 MG, QD
     Route: 048
     Dates: start: 20120618, end: 20120621
  3. SERTRALINE HYDROCHLORIDE [Concomitant]
  4. XANAX [Concomitant]

REACTIONS (9)
  - POLYMENORRHOEA [None]
  - CRYING [None]
  - MASTICATION DISORDER [None]
  - COUGH [None]
  - MUSCLE SPASMS [None]
  - HYPOKALAEMIA [None]
  - MUSCLE TIGHTNESS [None]
  - VOMITING [None]
  - DIARRHOEA [None]
